FAERS Safety Report 15762414 (Version 2)
Quarter: 2019Q1

REPORT INFORMATION
  Report Type: Spontaneous
  Country: FR (occurrence: FR)
  Receive Date: 20181226
  Receipt Date: 20190102
  Transmission Date: 20190417
  Serious: Yes (Hospitalization)
  Sender: FDA-Public Use
  Company Number: FR-MYLANLABS-2018M1095041

PATIENT
  Age: 71 Year
  Sex: Male

DRUGS (4)
  1. ESCITALOPRAM ARROW [Suspect]
     Active Substance: ESCITALOPRAM OXALATE
     Indication: DEPRESSION
     Dosage: 10 MILLIGRAM, QD (10 MG LE SOIR)
     Route: 048
     Dates: start: 20180607
  2. RISPERIDONE. [Suspect]
     Active Substance: RISPERIDONE
     Indication: AFFECTIVE DISORDER
     Dosage: 1 MILLIGRAM, QD (0.5 MG MATIN ET SOIR)
     Route: 048
     Dates: end: 20180603
  3. LOXAPINE SUCCINATE. [Suspect]
     Active Substance: LOXAPINE SUCCINATE
     Indication: AGITATION
     Dosage: 5 GTT DROPS (5 GOUTTES SI BESOIN)
     Route: 048
  4. OLANZAPINE MYLAN [Suspect]
     Active Substance: OLANZAPINE
     Indication: AFFECTIVE DISORDER
     Dosage: 5 MILLIGRAM, QD (5 MG LE SOIR)
     Route: 048
     Dates: start: 20180604

REACTIONS (2)
  - Hepatocellular injury [Not Recovered/Not Resolved]
  - Cholestasis [Not Recovered/Not Resolved]

NARRATIVE: CASE EVENT DATE: 20180605
